FAERS Safety Report 9376501 (Version 2)
Quarter: 2013Q3

REPORT INFORMATION
  Report Type: Spontaneous
  Country: US (occurrence: US)
  Receive Date: 20130701
  Receipt Date: 20130805
  Transmission Date: 20140515
  Serious: No
  Sender: FDA-Public Use
  Company Number: US-PFIZER INC-2013191099

PATIENT
  Age: 80 Year
  Sex: Male
  Weight: 117 kg

DRUGS (5)
  1. TOVIAZ [Suspect]
     Indication: HYPERTONIC BLADDER
     Dosage: 4 MG, 1X/DAY
     Route: 048
     Dates: start: 201305, end: 20130619
  2. SYNTHROID [Concomitant]
     Dosage: UNK
  3. FLECAINIDE [Concomitant]
     Dosage: UNK
  4. ATENOLOL [Concomitant]
     Dosage: UNK
  5. ALLOPURINOL [Concomitant]
     Dosage: UNK

REACTIONS (3)
  - Gastrointestinal infection [Unknown]
  - Constipation [Unknown]
  - Abdominal discomfort [Unknown]
